FAERS Safety Report 5138740-1 (Version None)
Quarter: 2006Q4

REPORT INFORMATION
  Report Type: 
  Country: None (occurrence: None)
  Receive Date: 20061026
  Receipt Date: 20061026
  Transmission Date: 20070319
  Serious: No
  Sender: FDA-Public Use
  Company Number: None

PATIENT
  Age: 29 Year
  Sex: Female
  Weight: 58.9676 kg

DRUGS (1)
  1. TOPAMAX [Suspect]
     Indication: MIGRAINE
     Dosage: ONE TABLET  TWICE  DAILY  PO
     Route: 048
     Dates: start: 20060912, end: 20061025

REACTIONS (2)
  - EYE PAIN [None]
  - VISION BLURRED [None]
